FAERS Safety Report 8519233 (Version 2)
Quarter: 2012Q4

REPORT INFORMATION
  Report Type: Spontaneous
  Country: DK (occurrence: None)
  Receive Date: 20120411
  Receipt Date: 20120921
  Transmission Date: 20130627
  Serious: Yes (Life-Threatening, Other)
  Sender: FDA-Public Use
  Company Number: 2012MA004393

PATIENT
  Age: 3 Month
  Sex: Female

DRUGS (3)
  1. RANITIDINE [Suspect]
     Indication: GASTROOESOPHAGEAL REFLUX DISEASE
     Route: 048
     Dates: start: 20111208, end: 20111215
  2. DOMPERIDONE [Concomitant]
  3. GAVISCON [Concomitant]

REACTIONS (2)
  - Screaming [None]
  - Muscle twitching [None]
